FAERS Safety Report 6818226-6 (Version None)
Quarter: 2010Q3

REPORT INFORMATION
  Report Type: 
  Country: None (occurrence: None)
  Receive Date: 20100706
  Receipt Date: 20070724
  Transmission Date: 20110219
  Serious: No
  Sender: FDA-Public Use
  Company Number: US-PFIZER INC-2007061025

PATIENT
  Sex: Male
  Weight: 9.53 kg

DRUGS (2)
  1. ZITHROMAX [Suspect]
     Indication: EAR INFECTION
     Route: 048
     Dates: start: 20070721, end: 20070723
  2. ZITHROMAX [Suspect]
     Indication: PHARYNGITIS

REACTIONS (1)
  - URTICARIA [None]
